FAERS Safety Report 14154317 (Version 1)
Quarter: 2017Q4

REPORT INFORMATION
  Report Type: Spontaneous
  Country: ZA (occurrence: ZA)
  Receive Date: 20171102
  Receipt Date: 20171102
  Transmission Date: 20180321
  Serious: Yes (Hospitalization)
  Sender: FDA-Public Use
  Company Number: ZA-MYLANLABS-2017M1068515

PATIENT
  Age: 60 Year
  Sex: Female

DRUGS (3)
  1. MYLAN PANTOPRAZOLE 40 MG [Suspect]
     Active Substance: PANTOPRAZOLE SODIUM
     Indication: ULCER
     Dosage: 40 MG, UNK
     Route: 048
  2. TRAMAHEXAL [Suspect]
     Active Substance: TRAMADOL HYDROCHLORIDE
     Indication: PAIN
     Dosage: 50 MG, UNK
     Route: 048
  3. ESTROFEM [Suspect]
     Active Substance: ESTRADIOL CYPIONATE
     Indication: HORMONE THERAPY
     Dosage: 1 MG, UNK
     Route: 048

REACTIONS (1)
  - Cartilage injury [Unknown]
